FAERS Safety Report 24231023 (Version 1)
Quarter: 2024Q3

REPORT INFORMATION
  Report Type: Spontaneous
  Country: US (occurrence: US)
  Receive Date: 20240821
  Receipt Date: 20240821
  Transmission Date: 20241016
  Serious: No
  Sender: CSL BEHRING
  Company Number: US-BEH-2024177096

PATIENT
  Sex: Female
  Weight: 56.689 kg

DRUGS (1)
  1. PRIVIGEN [Suspect]
     Active Substance: HUMAN IMMUNOGLOBULIN G
     Indication: Dermatomyositis
     Dosage: 3 VIALS AND TAKES 1 VIAL EACH DAY
     Route: 042
     Dates: start: 202404

REACTIONS (2)
  - Hepatitis B core antibody positive [Unknown]
  - Off label use [Unknown]
